FAERS Safety Report 19293178 (Version 1)
Quarter: 2021Q2

REPORT INFORMATION
  Report Type: Spontaneous
  Country: US (occurrence: US)
  Receive Date: 20210524
  Receipt Date: 20210524
  Transmission Date: 20210717
  Serious: No
  Sender: FDA-Public Use
  Company Number: US-TEVA-2021-US-1908965

PATIENT
  Age: 38 Year
  Sex: Female

DRUGS (1)
  1. METRONIDAZOLE. [Suspect]
     Active Substance: METRONIDAZOLE
     Route: 065
     Dates: start: 2019

REACTIONS (4)
  - Retching [Unknown]
  - Product taste abnormal [Unknown]
  - Poor quality product administered [Unknown]
  - Chills [Unknown]
